FAERS Safety Report 26182808 (Version 1)
Quarter: 2025Q4

REPORT INFORMATION
  Report Type: Spontaneous
  Country: US (occurrence: US)
  Receive Date: 20251221
  Receipt Date: 20251221
  Transmission Date: 20260117
  Serious: Yes (Life-Threatening, Hospitalization)
  Sender: DR REDDYS
  Company Number: None

PATIENT
  Age: 62 Year
  Sex: Female

DRUGS (1)
  1. LEVOTHYROXINE [Suspect]
     Active Substance: LEVOTHYROXINE
     Indication: Hypothyroidism
     Route: 042

REACTIONS (5)
  - Cardiogenic shock [Recovering/Resolving]
  - Dilated cardiomyopathy [Recovering/Resolving]
  - Ejection fraction decreased [Recovering/Resolving]
  - Condition aggravated [Recovering/Resolving]
  - Pulmonary oedema [Recovering/Resolving]
